FAERS Safety Report 7821923-7 (Version None)
Quarter: 2011Q4

REPORT INFORMATION
  Report Type: 
  Country: None (occurrence: None)
  Receive Date: 20111018
  Receipt Date: 20101203
  Transmission Date: 20120403
  Serious: No
  Sender: FDA-Public Use
  Company Number: US-ASTRAZENECA-2010SE57560

PATIENT
  Age: 71 Year
  Sex: Female
  Weight: 88.5 kg

DRUGS (12)
  1. NIFEDIPINE [Concomitant]
     Indication: HYPERTENSION
  2. FUROSEMIDE [Concomitant]
  3. LEVOTHYROXINE SODIUM [Concomitant]
  4. SYMBICORT [Suspect]
     Dosage: 160/4.5 UG 2 PUFFS
     Route: 055
  5. LANTUS [Concomitant]
  6. ALLOPURINOL [Concomitant]
  7. TRAVATAN [Concomitant]
     Indication: GLAUCOMA
  8. HUMALOG [Concomitant]
  9. LISINOPRIL [Concomitant]
  10. PLAVIX [Concomitant]
  11. SIMVASTATIN [Concomitant]
     Indication: HYPERCHOLESTEROLAEMIA
  12. LABETALOL HCL [Concomitant]

REACTIONS (1)
  - EPISTAXIS [None]
